FAERS Safety Report 5158082-8 (Version None)
Quarter: 2006Q4

REPORT INFORMATION
  Report Type: 
  Country: None (occurrence: None)
  Receive Date: 20061116
  Receipt Date: 20061103
  Transmission Date: 20070319
  Serious: Yes (Other)
  Sender: FDA-Public Use
  Company Number: 2006102408

PATIENT
  Age: 60 Year
  Weight: 70 kg

DRUGS (2)
  1. GABAPENTIN [Suspect]
     Indication: NEURALGIA
     Dosage: 900 MG (300 MG, 3 IN 1 D), ORAL
     Route: 048
     Dates: start: 20060705, end: 20060720
  2. AMITRIPTYLINE HCL [Concomitant]

REACTIONS (1)
  - JOINT SWELLING [None]
